FAERS Safety Report 20346187 (Version 5)
Quarter: 2022Q3

REPORT INFORMATION
  Report Type: Report from Study
  Country: AR (occurrence: AR)
  Receive Date: 20220118
  Receipt Date: 20220712
  Transmission Date: 20221027
  Serious: Yes (Hospitalization, Other)
  Sender: FDA-Public Use
  Company Number: AR-TAKEDA-2022TUS002149

PATIENT
  Age: 50 Year
  Sex: Male
  Weight: 85 kg

DRUGS (2)
  1. BRIGATINIB [Suspect]
     Active Substance: BRIGATINIB
     Indication: Adenocarcinoma
     Dosage: 90 MILLIGRAM, QD
     Route: 065
     Dates: start: 20210730
  2. BRIGATINIB [Suspect]
     Active Substance: BRIGATINIB
     Indication: Lung neoplasm malignant
     Dosage: 180 MILLIGRAM, QD
     Route: 065
     Dates: start: 20220131

REACTIONS (4)
  - Tuberculosis [Unknown]
  - Pleural effusion [Recovered/Resolved]
  - Blood creatine phosphokinase increased [Recovered/Resolved]
  - Drug interaction [Unknown]

NARRATIVE: CASE EVENT DATE: 20220117
